FAERS Safety Report 16543939 (Version 2)
Quarter: 2020Q3

REPORT INFORMATION
  Report Type: Report from Study
  Country: US (occurrence: US)
  Receive Date: 20190709
  Receipt Date: 20200703
  Transmission Date: 20201102
  Serious: Yes (Hospitalization, Other)
  Sender: FDA-Public Use
  Company Number: US-ROCHE-2346733

PATIENT
  Age: 53 Year
  Sex: Female
  Weight: 62.65 kg

DRUGS (6)
  1. OCREVUS [Suspect]
     Active Substance: OCRELIZUMAB
     Indication: RELAPSING-REMITTING MULTIPLE SCLEROSIS
     Dosage: ONGOING:YES?DATE OF TREATMENT : 05/FEB/2019
     Route: 042
     Dates: start: 201802
  2. FENTANYL. [Concomitant]
     Active Substance: FENTANYL
     Dosage: 25 MCG PATCH CUT IN HALF: ONGOING: YES
     Route: 061
     Dates: start: 2016
  3. ASPIRIN [ACETYLSALICYLIC ACID] [Concomitant]
     Active Substance: ASPIRIN
     Dosage: ONGOING:YES
     Route: 048
  4. OCREVUS [Suspect]
     Active Substance: OCRELIZUMAB
     Route: 042
     Dates: start: 202005
  5. OCREVUS [Suspect]
     Active Substance: OCRELIZUMAB
     Dosage: ONGOING; NO
     Route: 042
     Dates: start: 201801
  6. CYMBALTA [Concomitant]
     Active Substance: DULOXETINE HYDROCHLORIDE
     Dosage: ONGOING:YES
     Route: 048
     Dates: start: 2011

REACTIONS (16)
  - Therapeutic response shortened [Not Recovered/Not Resolved]
  - Feeding disorder [Recovered/Resolved]
  - Head injury [Recovered/Resolved]
  - Immunosuppression [Not Recovered/Not Resolved]
  - Dehydration [Not Recovered/Not Resolved]
  - Fall [Unknown]
  - Diarrhoea [Recovered/Resolved]
  - Cystitis [Not Recovered/Not Resolved]
  - Eye contusion [Recovered/Resolved]
  - Fatigue [Not Recovered/Not Resolved]
  - Musculoskeletal stiffness [Recovered/Resolved]
  - Pain in extremity [Not Recovered/Not Resolved]
  - Urinary tract infection [Recovered/Resolved]
  - Facial bones fracture [Recovered/Resolved]
  - Muscle spasms [Recovered/Resolved]
  - Pyrexia [Recovered/Resolved]

NARRATIVE: CASE EVENT DATE: 201802
